FAERS Safety Report 18486099 (Version 2)
Quarter: 2020Q4

REPORT INFORMATION
  Report Type: Report from Study
  Country: US (occurrence: US)
  Receive Date: 20201110
  Receipt Date: 20201112
  Transmission Date: 20210114
  Serious: Yes (Hospitalization)
  Sender: FDA-Public Use
  Company Number: US-PFIZER INC-2020439373

PATIENT
  Age: 78 Year
  Sex: Female
  Weight: 65 kg

DRUGS (3)
  1. ENALAPRIL [Suspect]
     Active Substance: ENALAPRIL
     Dosage: 20 MG
  2. NIFEDIPINE. [Suspect]
     Active Substance: NIFEDIPINE
     Dosage: 60 MG
  3. HCTZ [Suspect]
     Active Substance: HYDROCHLOROTHIAZIDE
     Dosage: 25 MG

REACTIONS (3)
  - Hypotension [Unknown]
  - Leukocytosis [Unknown]
  - Acute kidney injury [Unknown]

NARRATIVE: CASE EVENT DATE: 20201105
